FAERS Safety Report 4312975-X (Version None)
Quarter: 2004Q1

REPORT INFORMATION
  Report Type: 
  Country: None (occurrence: None)
  Receive Date: 20040304
  Receipt Date: 20040304
  Transmission Date: 20041129
  Serious: Yes (Other)
  Sender: FDA-Public Use
  Company Number: None

PATIENT
  Age: 39 Year
  Sex: Female

DRUGS (1)
  1. TUBERSOL [Suspect]

REACTIONS (2)
  - RASH MACULO-PAPULAR [None]
  - SKIN WARM [None]
